FAERS Safety Report 6651467-X (Version None)
Quarter: 2010Q1

REPORT INFORMATION
  Report Type: 
  Country: None (occurrence: None)
  Receive Date: 20100309
  Receipt Date: 20091130
  Transmission Date: 20100710
  Serious: No
  Sender: FDA-Public Use
  Company Number: 2009SP039397

PATIENT
  Age: 20 Year
  Sex: Male

DRUGS (2)
  1. SAPHRIS [Suspect]
     Indication: DRUG USE FOR UNKNOWN INDICATION
     Dosage: 5 MG; HS; SL
     Route: 060
     Dates: start: 20091101, end: 20091101
  2. LAMICTAL CD [Concomitant]

REACTIONS (1)
  - RASH [None]
